FAERS Safety Report 16105075 (Version 3)
Quarter: 2019Q2

REPORT INFORMATION
  Report Type: Spontaneous
  Country: TR (occurrence: TR)
  Receive Date: 20190322
  Receipt Date: 20190411
  Transmission Date: 20190711
  Serious: Yes (Other)
  Sender: FDA-Public Use
  Company Number: TR-ABBVIE-19S-161-2713216-00

PATIENT
  Age: 55 Year
  Sex: Male
  Weight: 70 kg

DRUGS (4)
  1. VIEKIRAX [Suspect]
     Active Substance: OMBITASVIR\PARITAPREVIR\RITONAVIR
     Indication: CHRONIC HEPATITIS C
     Dosage: 1X2
     Route: 048
     Dates: start: 201901
  2. CORASPIN [Concomitant]
     Active Substance: ASPIRIN
     Indication: ANTICOAGULANT THERAPY
     Route: 048
  3. RIBAVIRIN. [Suspect]
     Active Substance: RIBAVIRIN
     Indication: CHRONIC HEPATITIS C
     Dosage: MORNING: 3 TABLETS??EVENING: 2 TABLETS
     Route: 048
     Dates: start: 201901, end: 20190320
  4. RIBAVIRIN. [Suspect]
     Active Substance: RIBAVIRIN
     Dosage: MORNING: 3 TABLETS??EVENING: 2 TABLETS
     Route: 048
     Dates: start: 20190328

REACTIONS (2)
  - Liver disorder [Unknown]
  - Hyperbilirubinaemia [Recovered/Resolved]

NARRATIVE: CASE EVENT DATE: 2019
